FAERS Safety Report 6072907-3 (Version None)
Quarter: 2009Q1

REPORT INFORMATION
  Report Type: 
  Country: None (occurrence: None)
  Receive Date: 20090205
  Receipt Date: 20090122
  Transmission Date: 20090719
  Serious: Yes (Life-Threatening, Hospitalization)
  Sender: FDA-Public Use
  Company Number: 005273

PATIENT
  Age: 29 Year
  Sex: Female

DRUGS (6)
  1. BUSULFEX [Suspect]
     Indication: STEM CELL TRANSPLANT
     Dosage: 35 MG, QID, INTRAVENOUS
     Route: 042
     Dates: start: 20070720, end: 20070723
  2. DEPAKENE [Concomitant]
  3. CYCLOPHOSPHAMIDE [Concomitant]
  4. FILGRASTIM (FILGRASTIM) [Concomitant]
  5. METHOTREXATE [Concomitant]
  6. CYCLOSPORINE [Concomitant]

REACTIONS (6)
  - ACUTE LYMPHOCYTIC LEUKAEMIA RECURRENT [None]
  - DIALYSIS [None]
  - HEPATIC FUNCTION ABNORMAL [None]
  - HYPOKALAEMIA [None]
  - PANCYTOPENIA [None]
  - RENAL FAILURE [None]
